FAERS Safety Report 11121560 (Version 1)
Quarter: 2015Q2

REPORT INFORMATION
  Report Type: Spontaneous
  Country: US (occurrence: US)
  Receive Date: 20150519
  Receipt Date: 20150519
  Transmission Date: 20150821
  Serious: No
  Sender: FDA-Public Use
  Company Number: US-ASTRAZENECA-2015SE43414

PATIENT
  Sex: Male

DRUGS (1)
  1. KOMBIGLYZE XR [Suspect]
     Active Substance: METFORMIN HYDROCHLORIDE\SAXAGLIPTIN HYDROCHLORIDE
     Route: 048

REACTIONS (6)
  - Arthralgia [Unknown]
  - Glycosylated haemoglobin decreased [Unknown]
  - Blood glucose increased [Unknown]
  - Muscle atrophy [Unknown]
  - Myalgia [Unknown]
  - Drug dose omission [Unknown]
